FAERS Safety Report 8470881-3 (Version None)
Quarter: 2012Q2

REPORT INFORMATION
  Report Type: 
  Country: None (occurrence: None)
  Receive Date: 20120323
  Receipt Date: 20110908
  Transmission Date: 20120825
  Serious: Yes (Hospitalization)
  Sender: FDA-Public Use
  Company Number: 163-21880-11081674

PATIENT
  Age: 87 Year
  Sex: Female
  Weight: 60.6 kg

DRUGS (1)
  1. REVLIMID [Suspect]
     Indication: MULTIPLE MYELOMA
     Dosage: 15 MG, 1 IN 1 D, PO
     Route: 048
     Dates: start: 20090127

REACTIONS (5)
  - PARAESTHESIA [None]
  - BACK PAIN [None]
  - MUSCULOSKELETAL PAIN [None]
  - CHEST PAIN [None]
  - GROIN PAIN [None]
